FAERS Safety Report 4847983-3 (Version None)
Quarter: 2005Q4

REPORT INFORMATION
  Report Type: 
  Country: None (occurrence: None)
  Receive Date: 20051206
  Receipt Date: 20051206
  Transmission Date: 20060501
  Serious: Yes (Life-Threatening, Hospitalization)
  Sender: FDA-Public Use
  Company Number: None

PATIENT
  Sex: Female
  Weight: 59.8748 kg

DRUGS (1)
  1. DOXIL [Suspect]
     Indication: OVARIAN CANCER
     Dosage: 30 MILLIGRAMS PER METER SQUARE  EVERY FOUR WEEKS  IV DRIP
     Route: 041
     Dates: start: 20051020, end: 20051020

REACTIONS (2)
  - CARDIOMYOPATHY [None]
  - PANCYTOPENIA [None]
